FAERS Safety Report 8851954 (Version 1)
Quarter: 2012Q4

REPORT INFORMATION
  Report Type: 
  Country: US (occurrence: US)
  Receive Date: 20121022
  Receipt Date: 20121022
  Transmission Date: 20130627
  Serious: No
  Sender: FDA-Public Use
  Company Number: US-B.I. PHARMACEUTICALS,INC./RIDGEFIELD-2012-BP-25977BP

PATIENT
  Sex: Male

DRUGS (4)
  1. PRADAXA [Suspect]
     Indication: ATRIAL FIBRILLATION
     Dosage: 300 mg
  2. PRADAXA [Suspect]
     Dosage: 150 mg
  3. MULTAQ [Suspect]
     Indication: ATRIAL FIBRILLATION
     Dates: start: 201204
  4. LASIX [Concomitant]

REACTIONS (3)
  - Petechiae [Unknown]
  - Oedema peripheral [Unknown]
  - Drug interaction [Unknown]
